FAERS Safety Report 22992250 (Version 8)
Quarter: 2024Q2

REPORT INFORMATION
  Report Type: Spontaneous
  Country: CA (occurrence: CA)
  Receive Date: 20230927
  Receipt Date: 20240509
  Transmission Date: 20240716
  Serious: Yes (Life-Threatening, Hospitalization, Other)
  Sender: FDA-Public Use
  Company Number: CA-002147023-NVSC2023CA122141

PATIENT
  Age: 77 Year
  Sex: Female
  Weight: 93 kg

DRUGS (84)
  1. AMLODIPINE BESYLATE [Suspect]
     Active Substance: AMLODIPINE BESYLATE
     Indication: Prophylaxis
     Dosage: 200 MG, QD
     Route: 065
  2. AMLODIPINE BESYLATE [Suspect]
     Active Substance: AMLODIPINE BESYLATE
     Indication: Constipation
     Dosage: 5 MG, QD
     Route: 065
  3. AMLODIPINE BESYLATE [Suspect]
     Active Substance: AMLODIPINE BESYLATE
     Indication: Coronary artery disease
     Dosage: 5 MG
     Route: 065
  4. AMLODIPINE BESYLATE [Suspect]
     Active Substance: AMLODIPINE BESYLATE
     Dosage: 5 MG
     Route: 065
  5. AMLODIPINE BESYLATE [Suspect]
     Active Substance: AMLODIPINE BESYLATE
     Indication: Angina pectoris
     Dosage: 50 MG, QD
     Route: 065
  6. AMLODIPINE BESYLATE [Suspect]
     Active Substance: AMLODIPINE BESYLATE
     Dosage: 50 MG EVERY 1 DAYS
     Route: 065
  7. AMLODIPINE BESYLATE [Suspect]
     Active Substance: AMLODIPINE BESYLATE
     Dosage: 50 MG EVERY 1 DAYS
     Route: 065
  8. AMLODIPINE BESYLATE [Suspect]
     Active Substance: AMLODIPINE BESYLATE
     Indication: Hypertension
     Dosage: UNK
     Route: 065
  9. AMLODIPINE BESYLATE [Suspect]
     Active Substance: AMLODIPINE BESYLATE
     Dosage: UNK
     Route: 065
  10. AMLODIPINE BESYLATE [Suspect]
     Active Substance: AMLODIPINE BESYLATE
     Dosage: UNK
     Route: 065
  11. AMLODIPINE MESYLATE [Suspect]
     Active Substance: AMLODIPINE MESYLATE
     Indication: Angina pectoris
     Dosage: 5 MG, QD
     Route: 065
  12. AMLODIPINE MESYLATE [Suspect]
     Active Substance: AMLODIPINE MESYLATE
     Indication: Chest pain
     Dosage: 5 MG, QD
     Route: 065
  13. AMLODIPINE MESYLATE [Suspect]
     Active Substance: AMLODIPINE MESYLATE
     Indication: Coronary artery disease
     Dosage: 5 MG, QD
     Route: 065
  14. AMLODIPINE MESYLATE [Suspect]
     Active Substance: AMLODIPINE MESYLATE
     Indication: Hypertension
     Dosage: 5 MG, QD
     Route: 065
  15. AMLODIPINE MESYLATE [Suspect]
     Active Substance: AMLODIPINE MESYLATE
     Dosage: UNK
     Route: 065
  16. CARBAMAZEPINE [Suspect]
     Active Substance: CARBAMAZEPINE
     Dosage: 1 DF
     Route: 065
  17. CARBAMAZEPINE [Suspect]
     Active Substance: CARBAMAZEPINE
     Dosage: 1 DF, QD
     Route: 065
  18. CARBAMAZEPINE [Suspect]
     Active Substance: CARBAMAZEPINE
     Dosage: 1 DF 1 EVERY 1 DAYS
     Route: 065
  19. CARBAMAZEPINE [Suspect]
     Active Substance: CARBAMAZEPINE
     Dosage: 1 DOSAGE FORM
     Route: 065
  20. CARBAMAZEPINE [Suspect]
     Active Substance: CARBAMAZEPINE
     Dosage: 10 MG, QD
     Route: 065
  21. CARBAMAZEPINE [Suspect]
     Active Substance: CARBAMAZEPINE
     Dosage: 10 MG
     Route: 065
  22. CARBAMAZEPINE [Suspect]
     Active Substance: CARBAMAZEPINE
     Dosage: 100 MG
     Route: 065
  23. CARBAMAZEPINE [Suspect]
     Active Substance: CARBAMAZEPINE
     Indication: Prophylaxis
     Dosage: 100 MG, QD
     Route: 065
  24. CARBAMAZEPINE [Suspect]
     Active Substance: CARBAMAZEPINE
     Dosage: 100 MG, QD
     Route: 065
  25. CARBAMAZEPINE [Suspect]
     Active Substance: CARBAMAZEPINE
     Dosage: 100 MG, QD
     Route: 065
  26. CARBAMAZEPINE [Suspect]
     Active Substance: CARBAMAZEPINE
     Dosage: 100 MG
     Route: 065
  27. CARBAMAZEPINE [Suspect]
     Active Substance: CARBAMAZEPINE
     Dosage: 100 MG, Q12H
     Route: 065
  28. CARBAMAZEPINE [Suspect]
     Active Substance: CARBAMAZEPINE
     Dosage: 100 MG, BID
     Route: 065
  29. CARBAMAZEPINE [Suspect]
     Active Substance: CARBAMAZEPINE
     Dosage: 100 MG
     Route: 065
  30. CARBAMAZEPINE [Suspect]
     Active Substance: CARBAMAZEPINE
     Dosage: 100 MG
     Route: 065
  31. CARBAMAZEPINE [Suspect]
     Active Substance: CARBAMAZEPINE
     Dosage: 500 MG, BID
     Route: 065
  32. CARBAMAZEPINE [Suspect]
     Active Substance: CARBAMAZEPINE
     Dosage: 800 MG, BID
     Route: 065
  33. CARBAMAZEPINE [Suspect]
     Active Substance: CARBAMAZEPINE
     Dosage: 2 DF, QD
     Route: 065
  34. CARBAMAZEPINE [Suspect]
     Active Substance: CARBAMAZEPINE
     Dosage: 2 DOSAGE FORM, QD
     Route: 065
  35. CARBAMAZEPINE [Suspect]
     Active Substance: CARBAMAZEPINE
     Dosage: 2 DF, BID
     Route: 065
  36. CARBAMAZEPINE [Suspect]
     Active Substance: CARBAMAZEPINE
     Dosage: 2 DOSAGE FORM
     Route: 065
  37. CARBAMAZEPINE [Suspect]
     Active Substance: CARBAMAZEPINE
     Dosage: 100 MG, BID
     Route: 065
  38. CARBAMAZEPINE [Suspect]
     Active Substance: CARBAMAZEPINE
     Dosage: 200 MG
     Route: 065
  39. CARBAMAZEPINE [Suspect]
     Active Substance: CARBAMAZEPINE
     Indication: Bladder disorder
     Dosage: 200 MG, QD
     Route: 065
  40. CARBAMAZEPINE [Suspect]
     Active Substance: CARBAMAZEPINE
     Indication: Fibromyalgia
     Dosage: 200 MG, QD
     Route: 065
  41. CARBAMAZEPINE [Suspect]
     Active Substance: CARBAMAZEPINE
     Indication: Seizure prophylaxis
     Dosage: 200 MG, QD
     Route: 065
  42. CARBAMAZEPINE [Suspect]
     Active Substance: CARBAMAZEPINE
     Dosage: 200 MG, QD
     Route: 065
  43. CARBAMAZEPINE [Suspect]
     Active Substance: CARBAMAZEPINE
     Dosage: 200 MG, QD
     Route: 065
  44. CARBAMAZEPINE [Suspect]
     Active Substance: CARBAMAZEPINE
     Dosage: 200 MG, QD
     Route: 065
  45. CARBAMAZEPINE [Suspect]
     Active Substance: CARBAMAZEPINE
     Dosage: UNK
     Route: 065
  46. CARBAMAZEPINE [Suspect]
     Active Substance: CARBAMAZEPINE
     Dosage: 200 MG 1 EVERY 2 DAYS
     Route: 065
  47. CARBAMAZEPINE [Suspect]
     Active Substance: CARBAMAZEPINE
     Dosage: 200 MG, Q12H
     Route: 065
  48. CARBAMAZEPINE [Suspect]
     Active Substance: CARBAMAZEPINE
     Dosage: 200 MG, Q12H
     Route: 065
  49. CARBAMAZEPINE [Suspect]
     Active Substance: CARBAMAZEPINE
     Dosage: 200 MG, BID
     Route: 065
  50. CARBAMAZEPINE [Suspect]
     Active Substance: CARBAMAZEPINE
     Dosage: 200 MG
     Route: 065
  51. CARBAMAZEPINE [Suspect]
     Active Substance: CARBAMAZEPINE
     Dosage: 200 MG
     Route: 065
  52. CARBAMAZEPINE [Suspect]
     Active Substance: CARBAMAZEPINE
     Dosage: 200 MG
     Route: 065
  53. CARBAMAZEPINE [Suspect]
     Active Substance: CARBAMAZEPINE
     Dosage: UNK
     Route: 065
  54. CARBAMAZEPINE [Suspect]
     Active Substance: CARBAMAZEPINE
     Dosage: 2000 MG, QD
     Route: 065
  55. CARBAMAZEPINE [Suspect]
     Active Substance: CARBAMAZEPINE
     Dosage: 200 MG, BID
     Route: 065
  56. CARBAMAZEPINE [Suspect]
     Active Substance: CARBAMAZEPINE
     Dosage: 400 MG EVERY 1 DAYS
     Route: 065
  57. CARBAMAZEPINE [Suspect]
     Active Substance: CARBAMAZEPINE
     Dosage: 400 MG EVERY 1 DAYS
     Route: 065
  58. CARBAMAZEPINE [Suspect]
     Active Substance: CARBAMAZEPINE
     Dosage: 400 MG, BID
     Route: 065
  59. CARBAMAZEPINE [Suspect]
     Active Substance: CARBAMAZEPINE
     Dosage: 400 MG
     Route: 065
  60. CARBAMAZEPINE [Suspect]
     Active Substance: CARBAMAZEPINE
     Indication: Pain
     Dosage: 500 MG, QD
     Route: 065
  61. CARBAMAZEPINE [Suspect]
     Active Substance: CARBAMAZEPINE
     Indication: Seizure
     Dosage: 500 MG, QD
     Route: 065
  62. CARBAMAZEPINE [Suspect]
     Active Substance: CARBAMAZEPINE
     Dosage: 500 MG, QD
     Route: 065
  63. NITROGLYCERIN [Suspect]
     Active Substance: NITROGLYCERIN
     Dosage: 0.1 DF, Q24H
     Route: 065
  64. NITROGLYCERIN [Suspect]
     Active Substance: NITROGLYCERIN
     Dosage: 0.4 MG, QD
     Route: 065
  65. NITROGLYCERIN [Suspect]
     Active Substance: NITROGLYCERIN
     Dosage: 0.4 MG, QD
     Route: 065
  66. NITROGLYCERIN [Suspect]
     Active Substance: NITROGLYCERIN
     Indication: Angina pectoris
     Dosage: 0.4 MG, Q24H
     Route: 065
  67. NITROGLYCERIN [Suspect]
     Active Substance: NITROGLYCERIN
     Indication: Coronary artery disease
     Dosage: 0.4 MG
     Route: 065
  68. NITROGLYCERIN [Suspect]
     Active Substance: NITROGLYCERIN
     Dosage: 0.4 MG
     Route: 065
  69. NITROGLYCERIN [Suspect]
     Active Substance: NITROGLYCERIN
     Dosage: 0.6 MG, Q24H
     Route: 065
  70. NITROGLYCERIN [Suspect]
     Active Substance: NITROGLYCERIN
     Dosage: 0.6 MG, QD
     Route: 061
  71. NITROGLYCERIN [Suspect]
     Active Substance: NITROGLYCERIN
     Dosage: 0.6 MG, QD
     Route: 061
  72. NITROGLYCERIN [Suspect]
     Active Substance: NITROGLYCERIN
     Indication: Hypertension
     Dosage: 0.6 MG
     Route: 065
  73. NITROGLYCERIN [Suspect]
     Active Substance: NITROGLYCERIN
     Dosage: 0.6 MG, 1 EVERY 1 HOURS
     Route: 061
  74. NITROGLYCERIN [Suspect]
     Active Substance: NITROGLYCERIN
     Dosage: 1 DF, QD
     Route: 065
  75. NITROGLYCERIN [Suspect]
     Active Substance: NITROGLYCERIN
     Indication: Product used for unknown indication
     Dosage: 1 DOSAGE FORM, QD
     Route: 065
  76. NITROGLYCERIN [Suspect]
     Active Substance: NITROGLYCERIN
     Dosage: UNK
     Route: 065
  77. NITROGLYCERIN [Suspect]
     Active Substance: NITROGLYCERIN
     Dosage: 20 MG
     Route: 065
  78. NITROGLYCERIN [Suspect]
     Active Substance: NITROGLYCERIN
     Indication: Chest pain
     Dosage: UNK
     Route: 065
  79. NITROGLYCERIN [Suspect]
     Active Substance: NITROGLYCERIN
     Dosage: UNK
     Route: 065
  80. NITROGLYCERIN [Suspect]
     Active Substance: NITROGLYCERIN
     Dosage: 6 MG, Q24H
     Route: 065
  81. NITROGLYCERIN [Suspect]
     Active Substance: NITROGLYCERIN
     Dosage: UNK
     Route: 064
  82. NITROGLYCERIN [Suspect]
     Active Substance: NITROGLYCERIN
     Dosage: UNK
     Route: 065
  83. NITROGLYCERIN [Suspect]
     Active Substance: NITROGLYCERIN
     Dosage: UNK
     Route: 065
  84. OXCARBAZEPINE [Suspect]
     Active Substance: OXCARBAZEPINE
     Indication: Product used for unknown indication
     Dosage: UNK
     Route: 065

REACTIONS (23)
  - Sedation complication [Recovered/Resolved]
  - Creatinine renal clearance decreased [Recovered/Resolved]
  - Blood calcium decreased [Recovered/Resolved]
  - Balance disorder [Recovered/Resolved]
  - Cognitive disorder [Recovered/Resolved]
  - Constipation [Recovered/Resolved]
  - Drug interaction [Recovered/Resolved]
  - Drug abuse [Recovered/Resolved]
  - Dyspnoea [Recovered/Resolved]
  - Fall [Recovered/Resolved]
  - Hypotension [Recovered/Resolved]
  - Orthostatic hypotension [Recovered/Resolved]
  - Sedation [Recovered/Resolved]
  - Toxicity to various agents [Recovered/Resolved]
  - Depressed level of consciousness [Recovered/Resolved]
  - Mobility decreased [Recovered/Resolved]
  - Pain [Recovered/Resolved]
  - Overdose [Recovered/Resolved]
  - Renal function test abnormal [Recovered/Resolved]
  - Multiple drug therapy [Recovered/Resolved]
  - Creatinine renal clearance increased [Recovered/Resolved]
  - Product use in unapproved indication [Recovered/Resolved]
  - Off label use [Recovered/Resolved]
